FAERS Safety Report 24786105 (Version 2)
Quarter: 2025Q1

REPORT INFORMATION
  Report Type: Spontaneous
  Country: LK (occurrence: LK)
  Receive Date: 20241229
  Receipt Date: 20250102
  Transmission Date: 20250409
  Serious: Yes (Other)
  Sender: SANDOZ
  Company Number: LK-002147023-NVSC2024LK244754

PATIENT
  Age: 23 Year
  Sex: Female

DRUGS (12)
  1. GENTAMICIN [Suspect]
     Active Substance: GENTAMICIN
     Indication: Pseudomonas test positive
     Route: 057
  2. GENTAMICIN [Suspect]
     Active Substance: GENTAMICIN
     Indication: Keratitis
  3. GENTAMICIN [Suspect]
     Active Substance: GENTAMICIN
     Indication: Ulcerative keratitis
  4. MOXIFLOXACIN [Suspect]
     Active Substance: MOXIFLOXACIN
     Indication: Pseudomonas test positive
     Route: 061
  5. MOXIFLOXACIN [Suspect]
     Active Substance: MOXIFLOXACIN
     Indication: Keratitis
  6. MOXIFLOXACIN [Suspect]
     Active Substance: MOXIFLOXACIN
     Indication: Ulcerative keratitis
  7. TOBRAMYCIN [Suspect]
     Active Substance: TOBRAMYCIN
     Indication: Pseudomonas test positive
     Route: 061
  8. TOBRAMYCIN [Suspect]
     Active Substance: TOBRAMYCIN
     Indication: Keratitis
  9. TOBRAMYCIN [Suspect]
     Active Substance: TOBRAMYCIN
     Indication: Ulcerative keratitis
  10. CEFTAZIDIME [Concomitant]
     Active Substance: CEFTAZIDIME
     Indication: Pseudomonas test positive
     Route: 061
  11. CEFTAZIDIME [Concomitant]
     Active Substance: CEFTAZIDIME
     Indication: Keratitis
  12. CEFTAZIDIME [Concomitant]
     Active Substance: CEFTAZIDIME
     Indication: Ulcerative keratitis

REACTIONS (6)
  - Ulcerative keratitis [Recovered/Resolved]
  - Disease progression [Recovered/Resolved]
  - Pseudomonas infection [Recovered/Resolved]
  - Hypopyon [Recovered/Resolved]
  - Visual acuity reduced [Recovered/Resolved]
  - Drug resistance [Unknown]
